FAERS Safety Report 5291782-8 (Version None)
Quarter: 2007Q2

REPORT INFORMATION
  Report Type: 
  Country: None (occurrence: None)
  Receive Date: 20070406
  Receipt Date: 20070406
  Transmission Date: 20071010
  Serious: Yes (Life-Threatening, Hospitalization)
  Sender: FDA-Public Use
  Company Number: None

PATIENT
  Age: 47 Year
  Sex: Male
  Weight: 112.4921 kg

DRUGS (1)
  1. REMODULIN [Suspect]
     Indication: PULMONARY HYPERTENSION
     Dosage: 38 NG/KG/MIN   36 CC/24HR   CONT IV
     Route: 042

REACTIONS (7)
  - CARDIOGENIC SHOCK [None]
  - CHEST PAIN [None]
  - EYE DISORDER [None]
  - LUNG DISORDER [None]
  - PSEUDOMONAL BACTERAEMIA [None]
  - SEPTIC EMBOLUS [None]
  - SEPTIC SHOCK [None]
